FAERS Safety Report 8622189-0 (Version None)
Quarter: 2012Q3

REPORT INFORMATION
  Report Type: 
  Country: None (occurrence: None)
  Receive Date: 20120826
  Receipt Date: 20120821
  Transmission Date: 20120928
  Serious: Yes (Death)
  Sender: FDA-Public Use
  Company Number: US-009507513-1208USA007067

PATIENT

DRUGS (4)
  1. PREZISTA [Concomitant]
  2. ISENTRESS [Suspect]
     Indication: ACQUIRED IMMUNODEFICIENCY SYNDROME
     Dosage: 400 MG, BID
     Route: 048
     Dates: end: 20120701
  3. TRUVADA [Concomitant]
  4. NORVIR [Concomitant]

REACTIONS (1)
  - DEATH [None]
